FAERS Safety Report 9027189 (Version 1)
Quarter: 2013Q1

REPORT INFORMATION
  Report Type: Spontaneous
  Country: JP (occurrence: JP)
  Receive Date: 20130123
  Receipt Date: 20130123
  Transmission Date: 20140127
  Serious: Yes (Other)
  Sender: FDA-Public Use
  Company Number: JP-ASTRAZENECA-2013SE04145

PATIENT
  Age: 75 Year
  Sex: Male

DRUGS (3)
  1. DIPRIVAN [Suspect]
     Route: 042
     Dates: start: 20120427
  2. METHYLPREDNISOLONE [Concomitant]
     Route: 065
     Dates: start: 20120430
  3. METHYLPREDNISOLONE [Concomitant]
     Route: 065
     Dates: start: 20120511

REACTIONS (2)
  - Thrombotic thrombocytopenic purpura [Recovering/Resolving]
  - Rhabdomyolysis [Recovering/Resolving]
